FAERS Safety Report 7334480-9 (Version None)
Quarter: 2011Q1

REPORT INFORMATION
  Report Type: 
  Country: None (occurrence: None)
  Receive Date: 20110307
  Receipt Date: 20110302
  Transmission Date: 20110831
  Serious: Yes (Hospitalization)
  Sender: FDA-Public Use
  Company Number: JP-PFIZER INC-2011046087

PATIENT
  Age: 74 Year
  Sex: Female

DRUGS (1)
  1. ZYVOX [Suspect]
     Dosage: 1200 MG, 1X/DAY
     Route: 041
     Dates: start: 20110223, end: 20110301

REACTIONS (1)
  - LEUKOENCEPHALOPATHY [None]
